FAERS Safety Report 9726351 (Version 1)
Quarter: 2013Q4

REPORT INFORMATION
  Report Type: Spontaneous
  Country: IT (occurrence: None)
  Receive Date: 20131129
  Receipt Date: 20131129
  Transmission Date: 20140711
  Serious: Yes (Other)
  Sender: FDA-Public Use
  Company Number: AUR-APL-2013-09960

PATIENT
  Age: 77 Year
  Sex: Female

DRUGS (1)
  1. RAMIPRIL (RAMIPRIL) [Suspect]
     Indication: HYPERTENSION
     Route: 048
     Dates: start: 20130101, end: 20131023

REACTIONS (2)
  - Drug ineffective [None]
  - Hypertension [None]
